FAERS Safety Report 10022631 (Version 1)
Quarter: 2014Q1

REPORT INFORMATION
  Report Type: Spontaneous
  Country: US (occurrence: US)
  Receive Date: 20140319
  Receipt Date: 20140319
  Transmission Date: 20141002
  Serious: Yes (Hospitalization, Other)
  Sender: FDA-Public Use
  Company Number: US-B.I. PHARMACEUTICALS,INC./RIDGEFIELD-2014-BI-11482BP

PATIENT
  Sex: Male
  Weight: 68.03 kg

DRUGS (9)
  1. COMBIVENT [Suspect]
     Indication: CHRONIC OBSTRUCTIVE PULMONARY DISEASE
     Dosage: FORMULATION: INHALATION AEROSOL DOSE PER APPLICATION: 18 MCG / 103 MCG; DAILY DOSE: 144 MCG / 824 MC
     Route: 055
     Dates: start: 2009, end: 201401
  2. PROAIR [Concomitant]
     Indication: CHRONIC OBSTRUCTIVE PULMONARY DISEASE
     Dosage: FORMULATION: INHALATION AEROSOL
     Route: 055
  3. FLOVENT [Concomitant]
     Indication: CHRONIC OBSTRUCTIVE PULMONARY DISEASE
     Dosage: FORMULATION: INHALATION AEROSOL; DOSE PER APPLICATION: 1 INHALATION; DAILY DOSE: 1 INHALATION
     Route: 055
  4. SINGULAIR [Concomitant]
     Dosage: STRENGTH: 1 TABLET; DAILY DOSE: 1 TABLET
     Route: 048
  5. CARVEDILOL [Concomitant]
     Indication: CARDIAC DISORDER
     Dosage: 6.5 MG
     Route: 048
  6. THEOPHYLLINE [Concomitant]
     Dosage: 300 MG
     Route: 048
  7. PREDNISONE [Concomitant]
     Indication: CHRONIC OBSTRUCTIVE PULMONARY DISEASE
     Dosage: 20 MG
     Route: 048
  8. VITAMIN D [Concomitant]
     Dosage: STRENGTH: 1 TABLET; DAILY DOSE: 1 TABLET
     Route: 048
  9. SERTRALINE [Concomitant]
     Indication: DEPRESSION
     Dosage: 100 MG
     Route: 048

REACTIONS (4)
  - Fall [Recovered/Resolved]
  - Hip fracture [Recovered/Resolved]
  - Macular degeneration [Not Recovered/Not Resolved]
  - Asthenia [Not Recovered/Not Resolved]
